FAERS Safety Report 14124994 (Version 1)
Quarter: 2017Q4

REPORT INFORMATION
  Report Type: Spontaneous
  Country: US (occurrence: US)
  Receive Date: 20171025
  Receipt Date: 20171025
  Transmission Date: 20180321
  Serious: No
  Sender: FDA-Public Use
  Company Number: US-BRISTOL-MYERS SQUIBB COMPANY-BMS-2017-095715

PATIENT
  Age: 20 Year
  Sex: Male

DRUGS (2)
  1. REXULTI [Suspect]
     Active Substance: BREXPIPRAZOLE
     Indication: ANXIETY DISORDER
     Dosage: 0.5 MG, UNK
     Route: 065
     Dates: start: 2017, end: 2017
  2. ABILIFY [Suspect]
     Active Substance: ARIPIPRAZOLE
     Indication: ANXIETY DISORDER
     Dosage: 2 MG, UNK
     Route: 065
     Dates: start: 2017, end: 2017

REACTIONS (4)
  - Depressive symptom [Unknown]
  - Product use in unapproved indication [Unknown]
  - Akathisia [Recovered/Resolved]
  - Sedation [Unknown]
